FAERS Safety Report 7789183-3 (Version None)
Quarter: 2011Q3

REPORT INFORMATION
  Report Type: 
  Country: None (occurrence: None)
  Receive Date: 20110930
  Receipt Date: 20110926
  Transmission Date: 20111222
  Serious: Yes (Death)
  Sender: FDA-Public Use
  Company Number: AU-B.I. PHARMACEUTICALS,INC./RIDGEFIELD-2011-AU-00984AU

PATIENT
  Sex: Female

DRUGS (8)
  1. PRADAXA [Suspect]
     Indication: ATRIAL FIBRILLATION
     Dosage: 220 MG
     Dates: start: 20110711
  2. METOPROLOL [Concomitant]
     Dosage: 50 MG
     Route: 048
  3. RABEPRAZOLE SODIUM [Concomitant]
     Dosage: 10 MG
  4. ACTONEL [Concomitant]
     Dosage: 5 MG
  5. ACETAMINOPHEN W/ CODEINE [Concomitant]
  6. PHYSIOTENS [Concomitant]
     Dosage: 0.4 MG
  7. ASPIRIN [Concomitant]
     Dosage: 100 MG
     Route: 048
  8. PREDNISONE [Concomitant]
     Dosage: 10 MG
     Route: 048

REACTIONS (1)
  - CEREBROVASCULAR ACCIDENT [None]
